FAERS Safety Report 7623362-0 (Version None)
Quarter: 2011Q3

REPORT INFORMATION
  Report Type: 
  Country: None (occurrence: None)
  Receive Date: 20110720
  Receipt Date: 20110706
  Transmission Date: 20111222
  Serious: Yes (Hospitalization)
  Sender: FDA-Public Use
  Company Number: US-ROCHE-788361

PATIENT
  Sex: Male
  Weight: 77.3 kg

DRUGS (2)
  1. CAPECITABINE [Suspect]
     Dosage: CYCLE 1 WEEK ON AND 1 WEEK OFF.
     Route: 048
     Dates: start: 20080112
  2. COUMADIN [Concomitant]
     Route: 048

REACTIONS (1)
  - TRANSIENT ISCHAEMIC ATTACK [None]
